FAERS Safety Report 4692826-4 (Version None)
Quarter: 2005Q2

REPORT INFORMATION
  Report Type: 
  Country: None (occurrence: None)
  Receive Date: 20050617
  Receipt Date: 20050610
  Transmission Date: 20051028
  Serious: Yes (Death, Other)
  Sender: FDA-Public Use
  Company Number: 2005UW09002

PATIENT
  Sex: Female

DRUGS (1)
  1. ASTRAMORPH PF [Suspect]
     Route: 042

REACTIONS (3)
  - ACCIDENTAL OVERDOSE [None]
  - ASPIRATION BRONCHIAL [None]
  - RESPIRATORY ARREST [None]
